FAERS Safety Report 6099329-3 (Version None)
Quarter: 2009Q1

REPORT INFORMATION
  Report Type: 
  Country: None (occurrence: None)
  Receive Date: 20090226
  Receipt Date: 20090226
  Transmission Date: 20090719
  Serious: No
  Sender: FDA-Public Use
  Company Number: None

PATIENT
  Age: 53 Year
  Sex: Male

DRUGS (1)
  1. DOXYCYCLINE [Suspect]
     Indication: TOOTH INFECTION
     Dosage: 100 MG BID PO
     Route: 048
     Dates: start: 20090202, end: 20090205

REACTIONS (5)
  - BLOOD CALCIUM DECREASED [None]
  - DRUG INTERACTION [None]
  - FEELING JITTERY [None]
  - RENAL IMPAIRMENT [None]
  - THERAPEUTIC AGENT TOXICITY [None]
